FAERS Safety Report 15276800 (Version 2)
Quarter: 2018Q3

REPORT INFORMATION
  Report Type: Spontaneous
  Country: US (occurrence: US)
  Receive Date: 20180814
  Receipt Date: 20180925
  Transmission Date: 20181010
  Serious: No
  Sender: FDA-Public Use
  Company Number: US-LUNDBECK-DKLU2052255

PATIENT
  Age: 74 Year
  Sex: Male

DRUGS (1)
  1. NORTHERA [Suspect]
     Active Substance: DROXIDOPA
     Indication: PARKINSON^S DISEASE
     Route: 048
     Dates: start: 20180515

REACTIONS (5)
  - Fatigue [Unknown]
  - Hypotension [Unknown]
  - Dizziness [Unknown]
  - Fall [Unknown]
  - Chills [Unknown]

NARRATIVE: CASE EVENT DATE: 201807
